FAERS Safety Report 4933509-2 (Version None)
Quarter: 2006Q1

REPORT INFORMATION
  Report Type: 
  Country: None (occurrence: None)
  Receive Date: 20060106
  Receipt Date: 20051115
  Transmission Date: 20060701
  Serious: No
  Sender: FDA-Public Use
  Company Number: 200511302BWH

PATIENT
  Sex: Male

DRUGS (5)
  1. LEVITRA [Suspect]
     Dosage: 10 MG, TOTAL DAILY, ORAL
     Route: 048
     Dates: start: 20050401
  2. ACTOS [Concomitant]
  3. AMARYL [Concomitant]
  4. METFORMIN [Concomitant]
  5. ZOCOR [Concomitant]

REACTIONS (3)
  - ABNORMAL SENSATION IN EYE [None]
  - DIZZINESS [None]
  - EYE DISORDER [None]
